FAERS Safety Report 5171647-2 (Version None)
Quarter: 2006Q4

REPORT INFORMATION
  Report Type: 
  Country: None (occurrence: None)
  Receive Date: 20061213
  Receipt Date: 20061016
  Transmission Date: 20070319
  Serious: Yes (Other)
  Sender: FDA-Public Use
  Company Number: US-ROCHE-467719

PATIENT
  Age: 49 Year
  Sex: Female
  Weight: 55.8 kg

DRUGS (1)
  1. PEGASYS [Suspect]
     Route: 058
     Dates: start: 20060815

REACTIONS (4)
  - ERYTHEMA [None]
  - PERIORBITAL OEDEMA [None]
  - RASH GENERALISED [None]
  - RASH PAPULAR [None]
